FAERS Safety Report 4472976-8 (Version None)
Quarter: 2004Q4

REPORT INFORMATION
  Report Type: 
  Country: None (occurrence: None)
  Receive Date: 20041008
  Receipt Date: 20040930
  Transmission Date: 20050328
  Serious: Yes (Congenital Anomaly)
  Sender: FDA-Public Use
  Company Number: 2004PK01619

PATIENT
  Sex: Female
  Weight: 11 kg

DRUGS (4)
  1. BELOC ZOK [Suspect]
     Indication: HYPERTENSION
     Dates: start: 20010101
  2. PRESINOL [Suspect]
     Indication: HYPERTENSION
     Dates: start: 20010101
  3. NEPRESOL [Suspect]
     Indication: HYPERTENSION
     Dates: start: 20010101
  4. LISODURA [Suspect]
     Indication: HYPERTENSION
     Dates: start: 20010101

REACTIONS (4)
  - 17-HYDROXYPROGESTERONE INCREASED [None]
  - CONGENITAL ANOMALY [None]
  - DRUG EXPOSURE DURING PREGNANCY [None]
  - ENLARGED CLITORIS [None]
